FAERS Safety Report 4761963-8 (Version None)
Quarter: 2005Q3

REPORT INFORMATION
  Report Type: 
  Country: None (occurrence: None)
  Receive Date: 20050906
  Receipt Date: 20050310
  Transmission Date: 20060218
  Serious: Yes (Hospitalization, Disabling, Other)
  Sender: FDA-Public Use
  Company Number: US-MERCK-0503USA02034

PATIENT
  Age: 63 Year
  Sex: Male
  Weight: 118 kg

DRUGS (11)
  1. VIOXX [Suspect]
     Indication: BACK PAIN
     Route: 048
     Dates: start: 20030109, end: 20040415
  2. VIOXX [Suspect]
     Route: 048
     Dates: start: 20031009, end: 20031013
  3. VIOXX [Suspect]
     Indication: PAIN
     Route: 048
     Dates: start: 20030109, end: 20040415
  4. VIOXX [Suspect]
     Route: 048
     Dates: start: 20031009, end: 20031013
  5. AMBIEN [Concomitant]
     Indication: SLEEP DISORDER
     Route: 065
  6. ATIVAN [Concomitant]
     Indication: GENERALISED ANXIETY DISORDER
     Route: 065
  7. PLAVIX [Concomitant]
     Indication: CARDIAC DISORDER
     Route: 065
     Dates: start: 20031030
  8. LISINOPRIL [Concomitant]
     Route: 065
  9. ADVIL [Concomitant]
     Route: 065
     Dates: start: 20010101
  10. HYDROCODONE BITARTRATE [Concomitant]
     Route: 065
     Dates: start: 20010101, end: 20040101
  11. LOVASTATIN [Concomitant]
     Route: 065

REACTIONS (42)
  - AMNESIA [None]
  - ANEURYSM [None]
  - ANGER [None]
  - ANXIETY [None]
  - AORTIC DISORDER [None]
  - AORTIC VALVE INCOMPETENCE [None]
  - ARRHYTHMIA [None]
  - ATELECTASIS [None]
  - ATRIAL SEPTAL DEFECT [None]
  - CARDIAC DISORDER [None]
  - CARDIAC MURMUR [None]
  - CARDIOMEGALY [None]
  - CAROTID ARTERY STENOSIS [None]
  - CEREBRAL ISCHAEMIA [None]
  - CEREBROVASCULAR ACCIDENT [None]
  - CHEST DISCOMFORT [None]
  - CHEST PAIN [None]
  - DYSARTHRIA [None]
  - DYSPHASIA [None]
  - DYSPNOEA [None]
  - EMBOLISM [None]
  - EMOTIONAL DISTRESS [None]
  - ENCEPHALOMALACIA [None]
  - FATIGUE [None]
  - FIBROUS HISTIOCYTOMA [None]
  - GENERALISED ANXIETY DISORDER [None]
  - GLIOSIS [None]
  - HAEMORRHAGE INTRACRANIAL [None]
  - HIGH DENSITY LIPOPROTEIN INCREASED [None]
  - LOW DENSITY LIPOPROTEIN DECREASED [None]
  - LUNG DISORDER [None]
  - MENTAL STATUS CHANGES [None]
  - MITRAL VALVE INCOMPETENCE [None]
  - MYALGIA [None]
  - NERVOUS SYSTEM DISORDER [None]
  - PNEUMONIA [None]
  - PULMONARY VALVE INCOMPETENCE [None]
  - SLEEP APNOEA SYNDROME [None]
  - VENTRICULAR HYPERTROPHY [None]
  - VIRAL INFECTION [None]
  - VISION BLURRED [None]
  - VISUAL DISTURBANCE [None]
